FAERS Safety Report 7722330-8 (Version None)
Quarter: 2011Q3

REPORT INFORMATION
  Report Type: 
  Country: None (occurrence: None)
  Receive Date: 20110831
  Receipt Date: 20110824
  Transmission Date: 20111222
  Serious: Yes (Other)
  Sender: FDA-Public Use
  Company Number: GB-ABBOTT-10P-167-0680249-00

PATIENT
  Sex: Female

DRUGS (14)
  1. RIFAMPIN AND ISONIAZID [Concomitant]
     Indication: PRODUCT USED FOR UNKNOWN INDICATION
  2. MORPHINE SULFATE [Concomitant]
     Indication: PAIN
     Route: 048
  3. DEPO-MEDROL [Concomitant]
     Indication: PRODUCT USED FOR UNKNOWN INDICATION
     Route: 030
     Dates: start: 20101028, end: 20101028
  4. ADCAL D3 [Concomitant]
     Indication: VITAMIN D DECREASED
     Dosage: 2 TABS DAILY,  1 TAB , 2 IN 1 DAY
     Route: 048
  5. HUMIRA [Suspect]
     Indication: PSORIATIC ARTHROPATHY
     Route: 058
     Dates: start: 20100701, end: 20101101
  6. AZULFIDINE [Concomitant]
     Indication: PSORIATIC ARTHROPATHY
     Dosage: 2 GRAM DAILY, 2 IN 1 DAY
     Route: 048
  7. CITALOPRAM [Concomitant]
     Indication: DEPRESSION
     Dosage: 40MG DAILY, 20MG 2 IN 1 DAY
     Route: 048
  8. ETORICOXIB [Concomitant]
     Indication: PRODUCT USED FOR UNKNOWN INDICATION
  9. ORAMORPH SR [Concomitant]
     Indication: BREAKTHROUGH PAIN
     Dosage: UP TO 3 TIMES A DAY (TDS)
  10. ARCOXIA [Concomitant]
     Indication: PAIN
     Route: 048
  11. LANSOPRAZOLE [Concomitant]
     Indication: PRODUCT USED FOR UNKNOWN INDICATION
  12. LANSOPRAZOLE [Concomitant]
     Indication: PRODUCT USED FOR UNKNOWN INDICATION
  13. PYRIDOXINE HCL [Concomitant]
     Indication: LATENT TUBERCULOSIS
  14. FUROSEMIDE [Concomitant]
     Indication: PRODUCT USED FOR UNKNOWN INDICATION

REACTIONS (23)
  - ABDOMINAL PAIN UPPER [None]
  - OEDEMA PERIPHERAL [None]
  - HEADACHE [None]
  - MOUTH ULCERATION [None]
  - SKIN HAEMORRHAGE [None]
  - VAGINAL HAEMORRHAGE [None]
  - ECZEMA [None]
  - JOINT SWELLING [None]
  - EAR INFECTION [None]
  - PAIN IN JAW [None]
  - ABDOMINAL DISCOMFORT [None]
  - DECREASED APPETITE [None]
  - SKIN EXFOLIATION [None]
  - PSORIASIS [None]
  - NAUSEA [None]
  - LETHARGY [None]
  - DISTURBANCE IN SEXUAL AROUSAL [None]
  - CANDIDIASIS [None]
  - PARAESTHESIA [None]
  - ARTHRALGIA [None]
  - RECTAL HAEMORRHAGE [None]
  - HORDEOLUM [None]
  - CONTUSION [None]
